FAERS Safety Report 16716026 (Version 2)
Quarter: 2019Q3

REPORT INFORMATION
  Report Type: Spontaneous
  Country: IT (occurrence: IT)
  Receive Date: 20190819
  Receipt Date: 20190924
  Transmission Date: 20191005
  Serious: Yes (Other)
  Sender: FDA-Public Use
  Company Number: IT-IPSEN BIOPHARMACEUTICALS, INC.-2019-14548

PATIENT
  Age: 77 Year
  Sex: Female

DRUGS (1)
  1. LANREOTIDE [Suspect]
     Active Substance: LANREOTIDE
     Indication: NEUROENDOCRINE CARCINOMA
     Route: 042
     Dates: start: 20190213

REACTIONS (3)
  - Incorrect route of product administration [Unknown]
  - Hypertransaminasaemia [Unknown]
  - Off label use [Unknown]

NARRATIVE: CASE EVENT DATE: 20190516
